FAERS Safety Report 6537518-1 (Version None)
Quarter: 2010Q1

REPORT INFORMATION
  Report Type: 
  Country: None (occurrence: None)
  Receive Date: 20100114
  Receipt Date: 20100112
  Transmission Date: 20100710
  Serious: Yes (Life-Threatening, Hospitalization)
  Sender: FDA-Public Use
  Company Number: PHHO2009ES14337

PATIENT
  Sex: Male
  Weight: 70 kg

DRUGS (2)
  1. MYFORTIC [Suspect]
     Indication: RENAL TRANSPLANT
     Dosage: 1440 MG
     Route: 048
     Dates: start: 20081209, end: 20081210
  2. TACROLIMUS [Suspect]
     Indication: RENAL TRANSPLANT
     Dosage: 10 MG
     Route: 048
     Dates: start: 20081209, end: 20081210

REACTIONS (6)
  - COAGULOPATHY [None]
  - CONFUSIONAL STATE [None]
  - DISORIENTATION [None]
  - DRUG TOXICITY [None]
  - HALLUCINATION, VISUAL [None]
  - POST PROCEDURAL HAEMORRHAGE [None]
